FAERS Safety Report 9743312 (Version 3)
Quarter: 2013Q4

REPORT INFORMATION
  Report Type: Spontaneous
  Country: IT (occurrence: IT)
  Receive Date: 20131210
  Receipt Date: 20131220
  Transmission Date: 20140711
  Serious: Yes (Hospitalization)
  Sender: FDA-Public Use
  Company Number: IT-JNJFOC-20131203240

PATIENT
  Age: 35 Year
  Sex: Male
  Weight: 72 kg

DRUGS (2)
  1. SERENASE [Suspect]
     Indication: ALTERED STATE OF CONSCIOUSNESS
     Route: 048
     Dates: start: 20131105
  2. SERENASE [Suspect]
     Indication: ALTERED STATE OF CONSCIOUSNESS
     Route: 048
     Dates: start: 20131104

REACTIONS (6)
  - Extrapyramidal disorder [Recovered/Resolved with Sequelae]
  - Toxicity to various agents [Recovered/Resolved with Sequelae]
  - Self injurious behaviour [Recovered/Resolved with Sequelae]
  - Medication error [Recovering/Resolving]
  - Neck pain [Recovered/Resolved with Sequelae]
  - Altered state of consciousness [Recovered/Resolved with Sequelae]
